FAERS Safety Report 7814348-1 (Version None)
Quarter: 2011Q4

REPORT INFORMATION
  Report Type: 
  Country: None (occurrence: None)
  Receive Date: 20111011
  Receipt Date: 20111003
  Transmission Date: 20120403
  Serious: Yes (Hospitalization, Other)
  Sender: FDA-Public Use
  Company Number: 2010SP006063

PATIENT
  Age: 40 Year
  Sex: Female
  Weight: 81.6475 kg

DRUGS (15)
  1. NUVARING [Suspect]
     Indication: UTERINE LEIOMYOMA
     Dates: start: 20071201, end: 20080622
  2. KEPPRA [Concomitant]
  3. BACTRIM DS [Concomitant]
  4. COUMADIN [Suspect]
     Indication: PULMONARY EMBOLISM
     Dosage: 5 MG; QD
     Dates: start: 20080601
  5. SINGULAIR [Concomitant]
  6. IBUPROFEN [Concomitant]
  7. TUSSIONEX [Concomitant]
  8. HYDROCHLOROTHIAZIDE [Concomitant]
  9. FLONASE [Concomitant]
  10. DIFLUCAN [Concomitant]
  11. FLAGYL [Concomitant]
  12. VALIUM [Concomitant]
  13. ANAPROX DS [Concomitant]
  14. BENAZEPRIL HYDROCHLORIDE AND HYDROCHLOROTHIAZIDE [Concomitant]
  15. CYMBALTA [Concomitant]

REACTIONS (14)
  - DYSPNOEA [None]
  - URINARY TRACT INFECTION [None]
  - DIZZINESS [None]
  - NEUROPATHY PERIPHERAL [None]
  - VERTIGO [None]
  - HYPERCOAGULATION [None]
  - HYPOKALAEMIA [None]
  - DEMYELINATION [None]
  - VULVOVAGINAL MYCOTIC INFECTION [None]
  - CYSTITIS [None]
  - IRON DEFICIENCY ANAEMIA [None]
  - NOCTURNAL DYSPNOEA [None]
  - PULMONARY EMBOLISM [None]
  - SNORING [None]
